FAERS Safety Report 6673302-6 (Version None)
Quarter: 2010Q1

REPORT INFORMATION
  Report Type: 
  Country: None (occurrence: None)
  Receive Date: 20100329
  Receipt Date: 20090811
  Transmission Date: 20100710
  Serious: Yes (Other)
  Sender: FDA-Public Use
  Company Number: 2009253977

PATIENT

DRUGS (2)
  1. GEODON [Suspect]
  2. CONCERTA [Suspect]

REACTIONS (1)
  - DYSTONIA [None]
